FAERS Safety Report 24557282 (Version 2)
Quarter: 2024Q4

REPORT INFORMATION
  Report Type: Report from Study
  Country: AR (occurrence: AR)
  Receive Date: 20241028
  Receipt Date: 20241209
  Transmission Date: 20250114
  Serious: Yes (Hospitalization, Other)
  Sender: AMGEN
  Company Number: AR-AMGEN-ARGSL2024135098

PATIENT
  Age: 49 Year
  Sex: Female

DRUGS (2)
  1. VECTIBIX [Suspect]
     Active Substance: PANITUMUMAB
     Indication: Colorectal cancer
     Dosage: UNK, QMO (31 DAYS)
     Route: 065
     Dates: start: 20240704
  2. VECTIBIX [Suspect]
     Active Substance: PANITUMUMAB
     Dosage: UNK, 15 DAYS
     Route: 065
     Dates: start: 2024

REACTIONS (20)
  - Ill-defined disorder [Unknown]
  - Renal disorder [Unknown]
  - Nausea [Unknown]
  - Vomiting [Unknown]
  - Dehydration [Unknown]
  - Skin wrinkling [Unknown]
  - Skin burning sensation [Unknown]
  - Dermatitis allergic [Unknown]
  - Urticaria [Unknown]
  - Acne [Unknown]
  - Rash macular [Unknown]
  - Weight decreased [Unknown]
  - Rash [Unknown]
  - Pruritus [Unknown]
  - Skin exfoliation [Unknown]
  - Dry skin [Unknown]
  - Depressed mood [Not Recovered/Not Resolved]
  - Dandruff [Unknown]
  - Off label use [Unknown]
  - Paraesthesia [Unknown]

NARRATIVE: CASE EVENT DATE: 20240101
